FAERS Safety Report 24170947 (Version 2)
Quarter: 2024Q3

REPORT INFORMATION
  Report Type: Report from Study
  Country: US (occurrence: US)
  Receive Date: 20240805
  Receipt Date: 20240816
  Transmission Date: 20241017
  Serious: Yes (Hospitalization)
  Sender: BAYER
  Company Number: US-BAYER-2024A105461

PATIENT
  Age: 73 Year
  Sex: Female
  Weight: 134.24 kg

DRUGS (19)
  1. ADEMPAS [Suspect]
     Active Substance: RIOCIGUAT
     Indication: Pulmonary arterial hypertension
     Dosage: UNK
     Dates: start: 20201105
  2. ADEMPAS [Suspect]
     Active Substance: RIOCIGUAT
     Indication: Pulmonary arterial hypertension
     Dosage: 1.0 MG, TID
     Route: 048
  3. ADEMPAS [Suspect]
     Active Substance: RIOCIGUAT
     Indication: Pulmonary arterial hypertension
     Dosage: 1.0 MG, TID
     Route: 048
  4. PROCRIT [Concomitant]
     Active Substance: ERYTHROPOIETIN
  5. FAMOTIDINE [Concomitant]
     Active Substance: FAMOTIDINE
  6. UPTRAVI [Concomitant]
     Active Substance: SELEXIPAG
  7. POTASSIUM CHLORIDE [Concomitant]
     Active Substance: POTASSIUM CHLORIDE
  8. Dulcolax [Concomitant]
  9. SYNTHROID [Concomitant]
     Active Substance: LEVOTHYROXINE SODIUM
  10. OXYCODONE HYDROCHLORIDE [Concomitant]
     Active Substance: OXYCODONE HYDROCHLORIDE
  11. OPSUMIT [Concomitant]
     Active Substance: MACITENTAN
  12. BUMETANIDE [Concomitant]
     Active Substance: BUMETANIDE
  13. ELIQUIS [Concomitant]
     Active Substance: APIXABAN
  14. OXYCONTIN [Concomitant]
     Active Substance: OXYCODONE HYDROCHLORIDE
  15. METOPROLOL SUCCINATE [Concomitant]
     Active Substance: METOPROLOL SUCCINATE
  16. OXYGEN [Concomitant]
     Active Substance: OXYGEN
  17. LINZESS [Concomitant]
     Active Substance: LINACLOTIDE
  18. METAXALONE [Concomitant]
     Active Substance: METAXALONE
  19. GABAPENTIN [Concomitant]
     Active Substance: GABAPENTIN

REACTIONS (4)
  - Hypervolaemia [None]
  - Atrial fibrillation [None]
  - Oedema peripheral [None]
  - Dysstasia [None]

NARRATIVE: CASE EVENT DATE: 20240707
